FAERS Safety Report 7781191-1 (Version None)
Quarter: 2011Q3

REPORT INFORMATION
  Report Type: 
  Country: None (occurrence: None)
  Receive Date: 20110927
  Receipt Date: 20110923
  Transmission Date: 20111222
  Serious: Yes (Hospitalization)
  Sender: FDA-Public Use
  Company Number: CA-ABBOTT-11P-028-0857725-00

PATIENT
  Sex: Female
  Weight: 62 kg

DRUGS (5)
  1. LANSOPRAZOLE [Concomitant]
     Indication: PRODUCT USED FOR UNKNOWN INDICATION
     Route: 048
     Dates: start: 20110815
  2. PILL FOR BLADDER CONTROL [Concomitant]
     Indication: HYPERTONIC BLADDER
     Route: 048
     Dates: start: 20110815
  3. PREVACID [Concomitant]
     Indication: HYPERCHLORHYDRIA
     Route: 048
     Dates: start: 20090101
  4. CO ETIDROCAL [Concomitant]
     Indication: OSTEOPOROSIS
     Route: 048
     Dates: start: 20090101
  5. HUMIRA [Suspect]
     Indication: CROHN'S DISEASE
     Route: 058
     Dates: start: 20110202, end: 20110919

REACTIONS (3)
  - GASTROINTESTINAL INFLAMMATION [None]
  - INTESTINAL OBSTRUCTION [None]
  - DRUG INEFFECTIVE [None]
